FAERS Safety Report 24861266 (Version 4)
Quarter: 2025Q2

REPORT INFORMATION
  Report Type: Report from Study
  Country: CA (occurrence: CA)
  Receive Date: 20250120
  Receipt Date: 20250507
  Transmission Date: 20250717
  Serious: Yes (Other)
  Sender: TAKEDA
  Company Number: CA-TAKEDA-2025TUS005733

PATIENT
  Age: 40 Year
  Sex: Male

DRUGS (3)
  1. VEDOLIZUMAB [Suspect]
     Active Substance: VEDOLIZUMAB
     Indication: Crohn^s disease
  2. VEDOLIZUMAB [Suspect]
     Active Substance: VEDOLIZUMAB
     Indication: Crohn^s disease
     Dosage: 108 MILLIGRAM, Q2WEEKS
     Dates: start: 20250312
  3. VITAMIN D [Concomitant]
     Active Substance: VITAMIN D NOS

REACTIONS (6)
  - Crohn^s disease [Recovering/Resolving]
  - Enterovesical fistula [Unknown]
  - Diverticulitis intestinal perforated [Unknown]
  - Visual impairment [Recovering/Resolving]
  - Back pain [Unknown]
  - Cough [Unknown]

NARRATIVE: CASE EVENT DATE: 20250109
